FAERS Safety Report 8806127 (Version 1)
Quarter: 2012Q4

REPORT INFORMATION
  Report Type: 
  Country: US (occurrence: US)
  Receive Date: 20120925
  Receipt Date: 20120925
  Transmission Date: 20130627
  Serious: No
  Sender: FDA-Public Use
  Company Number: US-PFIZER INC-2012233587

PATIENT
  Age: 60 Year
  Sex: Female

DRUGS (2)
  1. LATANOPROST [Suspect]
     Indication: GLAUCOMA
     Dosage: UNK
  2. TIMOPTIC XE [Concomitant]
     Dosage: 1 drop in each eye in the evening

REACTIONS (2)
  - Eye irritation [Unknown]
  - Drug ineffective [Unknown]
